APPROVED DRUG PRODUCT: GENTAMICIN SULFATE
Active Ingredient: GENTAMICIN SULFATE
Strength: EQ 0.1% BASE
Dosage Form/Route: OINTMENT;TOPICAL
Application: A062496 | Product #001
Applicant: ALPHARMA US PHARMACEUTICALS DIVISION
Approved: Mar 14, 1984 | RLD: No | RS: No | Type: DISCN